FAERS Safety Report 5001804-7 (Version None)
Quarter: 2006Q2

REPORT INFORMATION
  Report Type: 
  Country: None (occurrence: None)
  Receive Date: 20060515
  Receipt Date: 20060315
  Transmission Date: 20061013
  Serious: Yes (Other)
  Sender: FDA-Public Use
  Company Number: CA-GLAXOSMITHKLINE-A0598454A

PATIENT
  Age: 35 Year
  Sex: Female

DRUGS (4)
  1. ADVAIR DISKUS 100/50 [Suspect]
     Indication: ASTHMA
     Dosage: 1PUFF TWICE PER DAY
     Route: 055
  2. VENTOLIN [Concomitant]
  3. REACTINE [Concomitant]
  4. NASONEX [Concomitant]
     Dosage: 4SPR PER DAY
     Route: 045

REACTIONS (11)
  - ASTHMA [None]
  - CONDITION AGGRAVATED [None]
  - COUGH [None]
  - DRUG DOSE OMISSION [None]
  - DYSPNOEA [None]
  - NASAL CONGESTION [None]
  - NASAL MUCOSAL DISORDER [None]
  - PYREXIA [None]
  - SINUSITIS [None]
  - UPPER RESPIRATORY TRACT INFECTION [None]
  - WHEEZING [None]
